FAERS Safety Report 7470760-4 (Version None)
Quarter: 2011Q2

REPORT INFORMATION
  Report Type: 
  Country: None (occurrence: None)
  Receive Date: 20110506
  Receipt Date: 20110506
  Transmission Date: 20111010
  Serious: Yes (Hospitalization, Disabling)
  Sender: FDA-Public Use
  Company Number: None

PATIENT
  Age: 81 Year
  Sex: Female

DRUGS (1)
  1. ASPIRIN [Suspect]
     Indication: ISCHAEMIC STROKE
     Dosage: 325 MG DAILY PO
     Route: 048
     Dates: start: 20110322, end: 20110402

REACTIONS (1)
  - GASTROINTESTINAL HAEMORRHAGE [None]
